FAERS Safety Report 19117605 (Version 2)
Quarter: 2021Q2

REPORT INFORMATION
  Report Type: Spontaneous
  Country: TR (occurrence: TR)
  Receive Date: 20210409
  Receipt Date: 20210414
  Transmission Date: 20210717
  Serious: Yes (Other)
  Sender: FDA-Public Use
  Company Number: NVSC2021TR076039

PATIENT
  Age: 45 Year
  Sex: Male

DRUGS (1)
  1. TEGRETOL [Suspect]
     Active Substance: CARBAMAZEPINE
     Indication: EPILEPSY
     Dosage: 2 DF, TID (1200 MG)
     Route: 048

REACTIONS (3)
  - Epilepsy [Unknown]
  - Product supply issue [Unknown]
  - Syncope [Unknown]
